FAERS Safety Report 22369382 (Version 1)
Quarter: 2023Q2

REPORT INFORMATION
  Report Type: Spontaneous
  Country: US (occurrence: US)
  Receive Date: 20230526
  Receipt Date: 20230526
  Transmission Date: 20230722
  Serious: No
  Sender: FDA-Public Use
  Company Number: US-GLAXOSMITHKLINE-US2023AMR073471

PATIENT
  Age: 63 Year
  Sex: Female
  Weight: 87.9 kg

DRUGS (1)
  1. ZEJULA [Suspect]
     Active Substance: NIRAPARIB
     Indication: Ovarian cancer
     Dosage: 300 MG, QD
     Route: 048
     Dates: start: 20230518

REACTIONS (9)
  - Muscular weakness [Unknown]
  - Fatigue [Unknown]
  - Chest discomfort [Unknown]
  - Nervousness [Unknown]
  - Abdominal discomfort [Unknown]
  - Insomnia [Unknown]
  - Feeling cold [Unknown]
  - Blood pressure increased [Unknown]
  - Off label use [Unknown]

NARRATIVE: CASE EVENT DATE: 20230518
